FAERS Safety Report 8082754-9 (Version None)
Quarter: 2012Q1

REPORT INFORMATION
  Report Type: 
  Country: None (occurrence: None)
  Receive Date: 20120127
  Receipt Date: 20110209
  Transmission Date: 20120608
  Serious: No
  Sender: FDA-Public Use
  Company Number: US-ABBOTT-11P-163-0703887-00

PATIENT
  Age: 53 Year
  Sex: Female

DRUGS (11)
  1. TRAZODONE HCL [Concomitant]
     Indication: INSOMNIA
     Dosage: AT NIGHT
  2. VITAMIN B-12 [Concomitant]
     Indication: NUTRITIONAL SUPPORT
     Dosage: MONTHLY
     Route: 050
  3. METOPROLOL TARTRATE [Concomitant]
     Indication: HYPERTENSION
     Dosage: AT NIGHT
  4. MORPHINE [Concomitant]
     Indication: PRODUCT USED FOR UNKNOWN INDICATION
     Dosage: UP TO FOUR TIMES A DAY
  5. VICODIN [Concomitant]
     Indication: PAIN
     Dosage: 500/20MG DAILY
  6. AMITRIPTYLINE HCL [Concomitant]
     Indication: INSOMNIA
     Dosage: AT NIGHT
  7. CLONAZEPAM [Concomitant]
     Indication: RESTLESS LEGS SYNDROME
  8. PROMETHAZINE [Concomitant]
     Indication: VOMITING
     Dosage: UP TO FOUR TIMES A DAY AS NEEDED
  9. MORPHINE [Concomitant]
     Indication: PAIN
     Dosage: UP TO THREE TIMES A DAY
  10. PROMETHAZINE [Concomitant]
     Indication: NAUSEA
  11. HUMIRA [Suspect]
     Indication: CROHN'S DISEASE
     Dates: start: 20100101

REACTIONS (1)
  - DIARRHOEA [None]
